FAERS Safety Report 16044660 (Version 1)
Quarter: 2019Q1

REPORT INFORMATION
  Report Type: Report from Study
  Country: None (occurrence: RO)
  Receive Date: 20190306
  Receipt Date: 20190306
  Transmission Date: 20190418
  Serious: Yes (Hospitalization, Other)
  Sender: FDA-Public Use
  Company Number: RO-ABBVIE-19K-135-2690165-00

PATIENT
  Sex: Male

DRUGS (4)
  1. HUMIRA [Suspect]
     Active Substance: ADALIMUMAB
     Route: 058
     Dates: start: 20190227
  2. HUMIRA [Suspect]
     Active Substance: ADALIMUMAB
     Indication: CROHN^S DISEASE
     Route: 058
     Dates: start: 20100815
  3. AVELOX [Suspect]
     Active Substance: MOXIFLOXACIN HYDROCHLORIDE
     Indication: PRODUCT USED FOR UNKNOWN INDICATION
     Route: 065
  4. HUMIRA [Suspect]
     Active Substance: ADALIMUMAB
     Route: 058
     Dates: end: 201710

REACTIONS (10)
  - Purulence [Recovered/Resolved]
  - Constipation [Recovered/Resolved]
  - Faecal calprotectin abnormal [Not Recovered/Not Resolved]
  - Intestinal fistula [Recovered/Resolved]
  - Diarrhoea [Recovered/Resolved]
  - Faecal calprotectin abnormal [Recovered/Resolved]
  - Abdominal hernia [Recovered/Resolved]
  - Intestinal fistula [Recovered/Resolved]
  - Drug hypersensitivity [Not Recovered/Not Resolved]
  - Injection site pain [Recovered/Resolved]

NARRATIVE: CASE EVENT DATE: 2010
